FAERS Safety Report 6609145-9 (Version None)
Quarter: 2010Q1

REPORT INFORMATION
  Report Type: 
  Country: None (occurrence: None)
  Receive Date: 20100226
  Receipt Date: 20100226
  Transmission Date: 20100710
  Serious: Yes (Hospitalization)
  Sender: FDA-Public Use
  Company Number: None

PATIENT
  Age: 45 Year
  Sex: Female
  Weight: 68.0396 kg

DRUGS (3)
  1. FENTANYL [Suspect]
     Indication: FIBROMYALGIA
     Dosage: 25 MG PATCH EVERY 72 HOURS TRANSDERMAL
     Route: 062
  2. FENTANYL [Suspect]
     Indication: SPINAL OSTEOARTHRITIS
     Dosage: 25 MG PATCH EVERY 72 HOURS TRANSDERMAL
     Route: 062
  3. FENTANYL [Suspect]

REACTIONS (9)
  - BACK PAIN [None]
  - DIARRHOEA [None]
  - DRUG ADMINISTRATION ERROR [None]
  - DYSSTASIA [None]
  - GAIT DISTURBANCE [None]
  - HEADACHE [None]
  - NAUSEA [None]
  - PRODUCT QUALITY ISSUE [None]
  - SOMNOLENCE [None]
